FAERS Safety Report 8179249-0 (Version None)
Quarter: 2012Q1

REPORT INFORMATION
  Report Type: 
  Country: None (occurrence: None)
  Receive Date: 20120229
  Receipt Date: 20120229
  Transmission Date: 20120608
  Serious: No
  Sender: FDA-Public Use
  Company Number: None

PATIENT
  Sex: Male
  Weight: 122.7 kg

DRUGS (4)
  1. ASPIRIN [Concomitant]
  2. MAGNESIUM OXIDE 400MG TABLETS 400MG GEMINI PHARMACEUTICALS [Suspect]
     Indication: TYPE 2 DIABETES MELLITUS
     Dosage: 1 TABLET ONCE A DAY ORAL
     Route: 048
  3. MAGNESIUM OXIDE 400MG TABLETS 400MG GEMINI PHARMACEUTICALS [Suspect]
     Indication: MUSCLE SPASMS
     Dosage: 1 TABLET ONCE A DAY ORAL
     Route: 048
  4. HOMEOPATHIC MEDICATIONS [Concomitant]

REACTIONS (1)
  - ABDOMINAL PAIN [None]
